FAERS Safety Report 9690509 (Version 1)
Quarter: 2013Q4

REPORT INFORMATION
  Report Type: Spontaneous
  Country: JP (occurrence: JP)
  Receive Date: 20131115
  Receipt Date: 20131115
  Transmission Date: 20140711
  Serious: Yes (Other)
  Sender: FDA-Public Use
  Company Number: JP-009507513-1311JPN006252

PATIENT
  Age: 61 Year
  Sex: Female

DRUGS (1)
  1. BONALON [Suspect]
     Dosage: 35 MG, QW
     Route: 048
     Dates: start: 201107, end: 201107

REACTIONS (1)
  - Haemorrhagic anaemia [Unknown]
